FAERS Safety Report 21432545 (Version 1)
Quarter: 2022Q4

REPORT INFORMATION
  Report Type: Report from Study
  Country: US (occurrence: US)
  Receive Date: 20221010
  Receipt Date: 20221010
  Transmission Date: 20230113
  Serious: Yes (Hospitalization)
  Sender: FDA-Public Use
  Company Number: US-ABBVIE-4146168

PATIENT
  Sex: Male
  Weight: 90.264 kg

DRUGS (13)
  1. HUMIRA [Suspect]
     Active Substance: ADALIMUMAB
     Indication: Psoriasis
     Route: 058
     Dates: start: 2012, end: 201602
  2. HUMIRA [Suspect]
     Active Substance: ADALIMUMAB
     Route: 058
  3. HUMIRA [Suspect]
     Active Substance: ADALIMUMAB
     Route: 058
     Dates: start: 202103
  4. PFIZER-BIONTECH COVID-19 VACCINE [Concomitant]
     Active Substance: TOZINAMERAN
     Indication: COVID-19 immunisation
     Dosage: 1ST DOSE/1 IN ONCE
     Route: 030
     Dates: start: 20210111, end: 20210111
  5. PFIZER-BIONTECH COVID-19 VACCINE [Concomitant]
     Active Substance: TOZINAMERAN
     Indication: COVID-19 immunisation
     Dosage: 2ND DOSE/1 IN ONCE
     Route: 030
     Dates: start: 20210201, end: 20210201
  6. PFIZER-BIONTECH COVID-19 VACCINE [Concomitant]
     Active Substance: TOZINAMERAN
     Indication: COVID-19 immunisation
     Dosage: 3RD DOSE/1 IN ONCE
     Route: 030
     Dates: start: 20210909, end: 20210909
  7. PFIZER-BIONTECH COVID-19 VACCINE [Concomitant]
     Active Substance: TOZINAMERAN
     Indication: COVID-19 immunisation
     Dosage: 4TH DOSE/1 IN ONCE
     Route: 030
     Dates: start: 20220413, end: 20220413
  8. PFIZER-BIONTECH COVID-19 VACCINE [Concomitant]
     Active Substance: TOZINAMERAN
     Indication: COVID-19 immunisation
     Dosage: 5TH DOSE/1 IN ONCE
     Route: 030
     Dates: start: 20220919, end: 20220919
  9. ASPIRIN [Concomitant]
     Active Substance: ASPIRIN
     Indication: Cardiovascular disorder
  10. Flamin [Concomitant]
     Indication: Product used for unknown indication
  11. LIPITOR [Concomitant]
     Active Substance: ATORVASTATIN CALCIUM
     Indication: Hypertension
  12. TORADOL [Concomitant]
     Active Substance: KETOROLAC TROMETHAMINE
     Indication: Cardiac disorder
  13. IRON [Concomitant]
     Active Substance: IRON
     Indication: Localised infection
     Dosage: 4 PACKS

REACTIONS (9)
  - Neuropathic arthropathy [Recovered/Resolved]
  - Wound [Recovered/Resolved]
  - Wound [Recovered/Resolved]
  - Skin laceration [Recovered/Resolved]
  - Weight decreased [Recovered/Resolved]
  - Limb injury [Recovered/Resolved]
  - Localised infection [Recovered/Resolved]
  - Foot deformity [Not Recovered/Not Resolved]
  - Neuropathic arthropathy [Recovered/Resolved]

NARRATIVE: CASE EVENT DATE: 20140101
